FAERS Safety Report 4370232-X (Version None)
Quarter: 2004Q2

REPORT INFORMATION
  Report Type: 
  Country: None (occurrence: None)
  Receive Date: 20040603
  Receipt Date: 20040322
  Transmission Date: 20050107
  Serious: No
  Sender: FDA-Public Use
  Company Number: US-BRISTOL-MYERS SQUIBB COMPANY-12539193

PATIENT
  Age: 35 Year
  Sex: Male
  Weight: 88 kg

DRUGS (2)
  1. ABILIFY [Suspect]
     Indication: SCHIZOPHRENIA
     Route: 048
     Dates: start: 20030101
  2. SEBULEX SHAMPOO [Concomitant]
     Indication: SEBORRHOEA

REACTIONS (1)
  - INSOMNIA [None]
